FAERS Safety Report 7127811-6 (Version None)
Quarter: 2010Q4

REPORT INFORMATION
  Report Type: 
  Country: None (occurrence: None)
  Receive Date: 20101130
  Receipt Date: 20100122
  Transmission Date: 20110411
  Serious: No
  Sender: FDA-Public Use
  Company Number: 2010BI002851

PATIENT
  Age: 31 Year
  Sex: Female

DRUGS (2)
  1. TYSABRI [Suspect]
     Indication: CROHN'S DISEASE
     Route: 042
     Dates: start: 20100118, end: 20100118
  2. PREDNISONE [Concomitant]
     Indication: CROHN'S DISEASE
     Route: 048

REACTIONS (7)
  - ADVERSE DRUG REACTION [None]
  - BLEPHAROSPASM [None]
  - HEADACHE [None]
  - HYPOAESTHESIA [None]
  - RASH MACULAR [None]
  - URTICARIA [None]
  - VISION BLURRED [None]
